FAERS Safety Report 6933324-4 (Version None)
Quarter: 2010Q3

REPORT INFORMATION
  Report Type: 
  Country: None (occurrence: None)
  Receive Date: 20100820
  Receipt Date: 20100806
  Transmission Date: 20110219
  Serious: Yes (Other)
  Sender: FDA-Public Use
  Company Number: US-TYCO HEALTHCARE/MALLINCKRODT-T201001767

PATIENT
  Sex: Male
  Weight: 90.249 kg

DRUGS (1)
  1. PENNSAID [Suspect]
     Indication: ARTHRALGIA
     Dosage: 10 GTTS  QD
     Route: 061
     Dates: start: 20100721, end: 20100723

REACTIONS (4)
  - ABASIA [None]
  - ARTHRALGIA [None]
  - OFF LABEL USE [None]
  - WEIGHT BEARING DIFFICULTY [None]
